FAERS Safety Report 8772464 (Version 2)
Quarter: 2012Q4

REPORT INFORMATION
  Report Type: 
  Country: ES (occurrence: ES)
  Receive Date: 20120905
  Receipt Date: 20120905
  Transmission Date: 20130627
  Serious: Yes (Hospitalization, Other)
  Sender: FDA-Public Use
  Company Number: ES-TEVA-316497ISR

PATIENT
  Age: 25 Year
  Sex: Female

DRUGS (2)
  1. AMOXICILLIN\CLAVULANIC ACID [Suspect]
     Indication: URINARY TRACT INFECTION
     Dosage: unit dose: 500/125 mg, Every 3 days
     Route: 042
     Dates: start: 20110404, end: 20110412
  2. FUROSEMIDE [Suspect]
     Route: 048
     Dates: start: 20110405, end: 20110408

REACTIONS (2)
  - Acute generalised exanthematous pustulosis [Recovered/Resolved]
  - Status epilepticus [Unknown]
